FAERS Safety Report 21499583 (Version 1)
Quarter: 2022Q4

REPORT INFORMATION
  Report Type: Spontaneous
  Country: US (occurrence: None)
  Receive Date: 20221024
  Receipt Date: 20221024
  Transmission Date: 20230112
  Serious: Yes (Hospitalization)
  Sender: FDA-Public Use
  Company Number: None

PATIENT
  Sex: Female

DRUGS (5)
  1. HUMIRA [Suspect]
     Active Substance: ADALIMUMAB
     Indication: Rheumatoid arthritis
     Dosage: FREQUENCY : EVERY OTHER WEEK;?
     Route: 058
  2. METOPROLOL SUCCINATE [Concomitant]
     Active Substance: METOPROLOL SUCCINATE
  3. PREDNISONE [Concomitant]
     Active Substance: PREDNISONE
  4. RESTASIS [Concomitant]
     Active Substance: CYCLOSPORINE
  5. METHOCARBAMOL [Concomitant]
     Active Substance: METHOCARBAMOL

REACTIONS (3)
  - Myocardial infarction [None]
  - Visual impairment [None]
  - Fatigue [None]
